FAERS Safety Report 4751085-4 (Version None)
Quarter: 2005Q3

REPORT INFORMATION
  Report Type: 
  Country: None (occurrence: None)
  Receive Date: 20050822
  Receipt Date: 20050808
  Transmission Date: 20060218
  Serious: Yes (Other)
  Sender: FDA-Public Use
  Company Number: 2005BI013263

PATIENT
  Age: 49 Year
  Sex: Female

DRUGS (5)
  1. AVONEX [Suspect]
     Indication: MULTIPLE SCLEROSIS
     Dosage: 30 UG; QW; IM
     Route: 030
     Dates: start: 20040423
  2. BACLOFEN [Concomitant]
  3. NEURONTIN [Concomitant]
  4. NOVANTRONE [Concomitant]
  5. REBIF [Concomitant]

REACTIONS (1)
  - MYOCARDIAL INFARCTION [None]
